FAERS Safety Report 6486348-8 (Version None)
Quarter: 2009Q4

REPORT INFORMATION
  Report Type: 
  Country: None (occurrence: None)
  Receive Date: 20091209
  Receipt Date: 20090904
  Transmission Date: 20100525
  Serious: No
  Sender: FDA-Public Use
  Company Number: US-AMGEN-KDL358037

PATIENT
  Sex: Female
  Weight: 83.1 kg

DRUGS (8)
  1. ENBREL [Suspect]
     Indication: RHEUMATOID ARTHRITIS
     Route: 058
     Dates: start: 20060701
  2. METHOTREXATE [Concomitant]
     Route: 030
  3. PREDNISONE [Concomitant]
  4. BENICAR [Concomitant]
  5. METOPROLOL [Concomitant]
  6. THYROID TAB [Concomitant]
  7. CALCIUM WITH VITAMIN D [Concomitant]
  8. BONIVA [Concomitant]

REACTIONS (3)
  - MAMMOPLASTY [None]
  - RHEUMATOID ARTHRITIS [None]
  - THERAPEUTIC RESPONSE DECREASED [None]
